FAERS Safety Report 7658354-9 (Version None)
Quarter: 2011Q3

REPORT INFORMATION
  Report Type: 
  Country: None (occurrence: None)
  Receive Date: 20110805
  Receipt Date: 20110726
  Transmission Date: 20111222
  Serious: Yes (Hospitalization)
  Sender: FDA-Public Use
  Company Number: CA-JNJFOC-20110800353

PATIENT
  Sex: Female
  Weight: 68.4 kg

DRUGS (6)
  1. VITAMIN B-12 [Concomitant]
  2. CALCIUM ACETATE [Concomitant]
  3. ORTHO TRI-CYCLEN [Concomitant]
  4. VITAMIN D [Concomitant]
  5. REMICADE [Suspect]
     Indication: CROHN'S DISEASE
     Route: 042
     Dates: start: 20100713
  6. TYLENOL W/ CODEINE NO. 3 [Concomitant]

REACTIONS (1)
  - MENISCUS LESION [None]
